FAERS Safety Report 7820178-7 (Version None)
Quarter: 2011Q4

REPORT INFORMATION
  Report Type: 
  Country: None (occurrence: None)
  Receive Date: 20111018
  Receipt Date: 20111005
  Transmission Date: 20120403
  Serious: Yes (Hospitalization)
  Sender: FDA-Public Use
  Company Number: ES-JNJFOC-20111005866

PATIENT
  Sex: Female
  Weight: 59.5 kg

DRUGS (2)
  1. TAPENTADOL HYDROCHLORIDE [Suspect]
     Indication: NEURALGIA
     Route: 048
     Dates: start: 20110831, end: 20111003
  2. TAPENTADOL HYDROCHLORIDE [Suspect]
     Indication: BACK PAIN
     Route: 048
     Dates: start: 20110831, end: 20111003

REACTIONS (1)
  - ABDOMINAL PAIN [None]
